FAERS Safety Report 5484911-4 (Version None)
Quarter: 2007Q4

REPORT INFORMATION
  Report Type: 
  Country: None (occurrence: None)
  Receive Date: 20071011
  Receipt Date: 20070926
  Transmission Date: 20080405
  Serious: Yes (Other)
  Sender: FDA-Public Use
  Company Number: VNL_00749_2007

PATIENT
  Age: 67 Year
  Sex: Male
  Weight: 62.5964 kg

DRUGS (1)
  1. APOKYN [Suspect]
     Indication: PARKINSON'S DISEASE
     Dosage: 0.3 ML TWO TO THREE TIMES DAILY SUBCUTANEOUS, 0.4 ML UNKNOWN FREQUENCY SUBCUTANEOUS
     Route: 058
     Dates: start: 20070822

REACTIONS (7)
  - DISEASE RECURRENCE [None]
  - FLANK PAIN [None]
  - HALLUCINATION [None]
  - INCORRECT DRUG ADMINISTRATION DURATION [None]
  - LIMB DISCOMFORT [None]
  - LOSS OF CONSCIOUSNESS [None]
  - PATHOLOGICAL GAMBLING [None]
